FAERS Safety Report 17224534 (Version 7)
Quarter: 2020Q4

REPORT INFORMATION
  Report Type: Spontaneous
  Country: IN (occurrence: IN)
  Receive Date: 20200102
  Receipt Date: 20201029
  Transmission Date: 20210113
  Serious: Yes (Hospitalization)
  Sender: FDA-Public Use
  Company Number: IN-PFIZER INC-2019437021

PATIENT
  Age: 50 Year
  Sex: Female
  Weight: 67 kg

DRUGS (10)
  1. PALBACE [Suspect]
     Active Substance: PALBOCICLIB
     Indication: BREAST CANCER METASTATIC
     Dosage: 125 MG, CYCLIC (ONCE DAILY, 21 DAYS FOLLOWED BY GAP OF 7 DAYS)
     Route: 048
     Dates: start: 20181220
  2. FEMARA [Concomitant]
     Active Substance: LETROZOLE
     Dosage: 2.5 MG, DAILY (FOR 3 MONTHS)
  3. CALCIROL [COLECALCIFEROL] [Concomitant]
     Dosage: 1 DF, WEEKLY (X5 WEEKS THEN ONCE A MONTH X3 MONTHS)
  4. COBADEX-Z [Concomitant]
     Dosage: 1 DF, DAILY (X3 MONTHS)
  5. PAN D [CAMPHOR;GLYCEROL;MENTHOL;ZINC OXIDE] [Concomitant]
     Dosage: 1 DF, 1X/DAY (BEFORE BREAKFAST) IF REQUIRED FOR ACIDITY
  6. LETROZOL [Concomitant]
     Active Substance: LETROZOLE
     Dosage: UNK
  7. ZOLEDRONATE [Concomitant]
     Active Substance: ZOLEDRONIC ACID
     Dosage: UNK (4MG IN 100ML NS IV (3 MONTHLY))
  8. SHELCAL [CALCIUM;COLECALCIFEROL] [Concomitant]
     Dosage: 500 MG, 2X/DAY (FOR 3 MONTHS)
  9. ULTRACET [Concomitant]
     Active Substance: ACETAMINOPHEN\TRAMADOL HYDROCHLORIDE
     Indication: PAIN
     Dosage: 1 DF, AS NEEDED (X7 DAYS)
  10. ALPRAX [Concomitant]
     Dosage: 0.25 MG, 1X/DAY (AT BEDTIME TO CONTINUE)

REACTIONS (10)
  - Paranoia [Unknown]
  - Swelling [Unknown]
  - Chest pain [Unknown]
  - Full blood count decreased [Unknown]
  - Vomiting [Unknown]
  - Dyspnoea [Unknown]
  - Pyrexia [Unknown]
  - Throat irritation [Unknown]
  - Cough [Unknown]
  - Nausea [Unknown]

NARRATIVE: CASE EVENT DATE: 20190110
